FAERS Safety Report 13945133 (Version 1)
Quarter: 2017Q3

REPORT INFORMATION
  Report Type: Spontaneous
  Country: CA (occurrence: CA)
  Receive Date: 20170907
  Receipt Date: 20170907
  Transmission Date: 20171128
  Serious: Yes (Hospitalization, Other)
  Sender: FDA-Public Use
  Company Number: CA-TEVA-803659ACC

PATIENT
  Age: 53 Year
  Sex: Female
  Weight: 48 kg

DRUGS (22)
  1. PANTOPRAZOLE [Suspect]
     Active Substance: PANTOPRAZOLE
     Indication: PROPHYLAXIS
     Dosage: 40 MILLIGRAM DAILY;
     Route: 048
  2. RENAGEL [Concomitant]
     Active Substance: SEVELAMER HYDROCHLORIDE
  3. DOCUSATE [Concomitant]
     Active Substance: DOCUSATE
  4. INSULIN GLARGINE [Concomitant]
     Active Substance: INSULIN GLARGINE
  5. CLOPIDOGREL (UNSPECIFIED BRAND) [Concomitant]
  6. SODIUM FERRIC GLUCONATE COMPLEX. [Concomitant]
     Active Substance: SODIUM FERRIC GLUCONATE COMPLEX
  7. TYLENOL [Concomitant]
     Active Substance: ACETAMINOPHEN
  8. GRAVOL [Concomitant]
     Active Substance: DIMENHYDRINATE
  9. NABILONE [Concomitant]
     Active Substance: NABILONE
  10. ASA [Concomitant]
     Active Substance: ASPIRIN
  11. HYDROMORPH CONTIN [Concomitant]
     Active Substance: HYDROMORPHONE
  12. METOPROLOL. [Concomitant]
     Active Substance: METOPROLOL
  13. TOBRAMYCIN INJECTION USP [Concomitant]
  14. GABAPENTIN. [Concomitant]
     Active Substance: GABAPENTIN
  15. KETAMINE HYDROCHLORIDE INJECTION USP [Concomitant]
     Active Substance: KETAMINE HYDROCHLORIDE
  16. LISPRO 50LIS50NPL [Concomitant]
  17. ROSUVASTATIN. [Concomitant]
     Active Substance: ROSUVASTATIN
  18. VENLAFAXINE XR [Suspect]
     Active Substance: VENLAFAXINE HYDROCHLORIDE
     Indication: DEPRESSION
     Dosage: 75 MILLIGRAM DAILY;
     Route: 048
  19. VENLAFAXINE XR [Suspect]
     Active Substance: VENLAFAXINE HYDROCHLORIDE
     Indication: ANXIETY
  20. BISACODYL. [Concomitant]
     Active Substance: BISACODYL
  21. MULTIVITAMINE(S) [Concomitant]
  22. VANCOMYCIN [Concomitant]
     Active Substance: VANCOMYCIN

REACTIONS (3)
  - Infusion site discharge [Recovered/Resolved]
  - Infusion site erythema [Recovered/Resolved]
  - Neutrophil count decreased [Recovered/Resolved]
